FAERS Safety Report 4793435-9 (Version None)
Quarter: 2005Q4

REPORT INFORMATION
  Report Type: 
  Country: None (occurrence: None)
  Receive Date: 20051011
  Receipt Date: 20041123
  Transmission Date: 20060501
  Serious: No
  Sender: FDA-Public Use
  Company Number: US-BRISTOL-MYERS SQUIBB COMPANY-12773834

PATIENT
  Age: 80 Year
  Sex: Female
  Weight: 64 kg

DRUGS (12)
  1. GLUCOPHAGE XR [Suspect]
     Indication: DIABETES MELLITUS
     Route: 048
  2. ACCUPRIL [Concomitant]
  3. THYROID TAB [Concomitant]
  4. PERSANTINE [Concomitant]
  5. FOLIC ACID [Concomitant]
  6. MULTI-VITAMIN [Concomitant]
  7. PRANDIN [Concomitant]
  8. SOMA [Concomitant]
  9. PHENOBARBITAL TAB [Concomitant]
  10. LOMOTIL [Concomitant]
  11. PEPCID [Concomitant]
  12. DYAZIDE [Concomitant]

REACTIONS (4)
  - BLOOD CREATININE INCREASED [None]
  - BLOOD GLUCOSE DECREASED [None]
  - FATIGUE [None]
  - WEIGHT DECREASED [None]
